FAERS Safety Report 9525203 (Version 1)
Quarter: 2013Q3

REPORT INFORMATION
  Report Type: Spontaneous
  Country: MX (occurrence: MX)
  Receive Date: 20130916
  Receipt Date: 20130916
  Transmission Date: 20140515
  Serious: Yes (Other)
  Sender: FDA-Public Use
  Company Number: PHHY2013MX102350

PATIENT
  Age: 61 Year
  Sex: Male

DRUGS (3)
  1. DIOVAN [Suspect]
     Indication: HYPERTENSION
     Dosage: 160 MG, DAILY
     Route: 048
     Dates: end: 201308
  2. GALVUS MET [Suspect]
     Indication: DIABETES MELLITUS
     Dosage: 1 UKN, DAILY
     Dates: start: 2011
  3. LYRICA [Concomitant]
     Dosage: UKN (150 MG), DAILY
     Dates: start: 2011

REACTIONS (7)
  - Hypertension [Not Recovered/Not Resolved]
  - Intervertebral disc protrusion [Unknown]
  - Blood pressure inadequately controlled [Not Recovered/Not Resolved]
  - Headache [Not Recovered/Not Resolved]
  - Fatigue [Not Recovered/Not Resolved]
  - Tachycardia [Not Recovered/Not Resolved]
  - Palpitations [Not Recovered/Not Resolved]
